FAERS Safety Report 8147180-2 (Version None)
Quarter: 2012Q1

REPORT INFORMATION
  Report Type: 
  Country: None (occurrence: None)
  Receive Date: 20120218
  Receipt Date: 20110124
  Transmission Date: 20120608
  Serious: No
  Sender: FDA-Public Use
  Company Number: US-ALLERGAN-1101045US

PATIENT
  Age: 4 Year
  Sex: Male

DRUGS (7)
  1. TRIAMCINOLONE [Concomitant]
     Dosage: UNK
  2. BOTULINUM TOXIN TYPE A [Suspect]
     Dosage: UNK
     Dates: start: 20110124
  3. HYDROCORTISONE [Concomitant]
     Indication: PRODUCT USED FOR UNKNOWN INDICATION
     Dosage: UNK
     Route: 061
  4. MIRALAX [Concomitant]
     Indication: PRODUCT USED FOR UNKNOWN INDICATION
     Dosage: 17 G, QD
  5. BOTULINUM TOXIN TYPE A [Suspect]
     Indication: MUSCLE SPASTICITY
     Dosage: 45 UNITS, SINGLE
     Route: 030
     Dates: start: 20100823, end: 20100823
  6. ALBUTEROL [Concomitant]
     Indication: PRODUCT USED FOR UNKNOWN INDICATION
     Dosage: UNK
  7. PULMICORT-100 [Concomitant]
     Indication: PRODUCT USED FOR UNKNOWN INDICATION
     Dosage: UNK

REACTIONS (1)
  - SALIVARY HYPERSECRETION [None]
